FAERS Safety Report 12678188 (Version 1)
Quarter: 2016Q3

REPORT INFORMATION
  Report Type: Spontaneous
  Country: SE (occurrence: SE)
  Receive Date: 20160823
  Receipt Date: 20160823
  Transmission Date: 20161109
  Serious: Yes (Other)
  Sender: FDA-Public Use
  Company Number: SE-PFIZER INC-2016398912

PATIENT
  Sex: Female

DRUGS (2)
  1. XANOR [Suspect]
     Active Substance: ALPRAZOLAM
     Dosage: 0.5 MG, 5 TIMES A DAY
  2. XANOR [Suspect]
     Active Substance: ALPRAZOLAM
     Dosage: 0.5 MG, UNK
     Dates: start: 2003

REACTIONS (3)
  - Neoplasm malignant [Unknown]
  - Nausea [Not Recovered/Not Resolved]
  - Alopecia [Unknown]
